FAERS Safety Report 14893489 (Version 1)
Quarter: 2018Q2

REPORT INFORMATION
  Report Type: Spontaneous
  Country: CA (occurrence: CA)
  Receive Date: 20180514
  Receipt Date: 20180514
  Transmission Date: 20180711
  Serious: Yes (Hospitalization, Other)
  Sender: FDA-Public Use
  Company Number: CA-SHIRE-CA201817116

PATIENT

DRUGS (7)
  1. GAMMAGARD LIQUID [Suspect]
     Active Substance: HUMAN IMMUNOGLOBULIN G
     Indication: IMMUNE THROMBOCYTOPENIC PURPURA
     Route: 042
  2. BETAMETHASONE. [Suspect]
     Active Substance: BETAMETHASONE
     Indication: PROPHYLAXIS
     Route: 065
  3. CEFTRIAXONE. [Suspect]
     Active Substance: CEFTRIAXONE
     Indication: RELAPSING FEVER
     Route: 042
  4. CEFTRIAXONE. [Suspect]
     Active Substance: CEFTRIAXONE
     Indication: MYOCARDITIS
  5. DOXYCYCLINE HYCLATE. [Suspect]
     Active Substance: DOXYCYCLINE HYCLATE
     Indication: PRODUCT USED FOR UNKNOWN INDICATION
     Dosage: 4 DF, UNK
     Route: 065
  6. FUROSEMIDE. [Suspect]
     Active Substance: FUROSEMIDE
     Indication: POLYURIA
     Route: 065
  7. ERYTHRO BASE [Suspect]
     Active Substance: ERYTHROMYCIN
     Indication: RELAPSING FEVER
     Route: 065

REACTIONS (2)
  - Exposure during pregnancy [Recovering/Resolving]
  - Jarisch-Herxheimer reaction [Recovering/Resolving]
